FAERS Safety Report 9421820 (Version 1)
Quarter: 2013Q3

REPORT INFORMATION
  Report Type: Report from Study
  Country: CA (occurrence: CA)
  Receive Date: 20130726
  Receipt Date: 20130726
  Transmission Date: 20140515
  Serious: Yes (Life-Threatening, Hospitalization)
  Sender: FDA-Public Use
  Company Number: CA-ROCHE-1251723

PATIENT
  Age: 31 Year
  Sex: Female
  Weight: 67.1 kg

DRUGS (6)
  1. XELODA [Suspect]
     Indication: BREAST CANCER METASTATIC
     Route: 048
     Dates: start: 20130626, end: 201307
  2. COPHYLAC EXPECTORANT [Concomitant]
  3. CODEINE [Concomitant]
  4. HYDROMORPHONE [Concomitant]
     Dosage: DRUG REPORTED AS : APO-HYDROMORPHONE
     Route: 065
  5. DOCUSATE SODIUM [Concomitant]
  6. LORAZEPAM [Concomitant]

REACTIONS (2)
  - Pulmonary embolism [Unknown]
  - Disease progression [Unknown]
